FAERS Safety Report 8600568-5 (Version None)
Quarter: 2012Q3

REPORT INFORMATION
  Report Type: 
  Country: None (occurrence: None)
  Receive Date: 20120817
  Receipt Date: 20110808
  Transmission Date: 20120928
  Serious: No
  Sender: FDA-Public Use
  Company Number: US-MYLANLABS-2011S1014827

PATIENT
  Age: 72 Year
  Sex: Female

DRUGS (2)
  1. LISINOPRIL AND HYDROCHLOROTHIAZIDE [Suspect]
     Indication: FLUID RETENTION
     Dates: start: 20110301, end: 20110301
  2. LISINOPRIL AND HYDROCHLOROTHIAZIDE [Suspect]
     Indication: BLOOD PRESSURE INCREASED
     Dates: start: 20110301, end: 20110301

REACTIONS (14)
  - VISION BLURRED [None]
  - RESPIRATORY DISORDER [None]
  - HYPOAESTHESIA [None]
  - PRURITUS [None]
  - NAUSEA [None]
  - MUSCULOSKELETAL PAIN [None]
  - BURNING SENSATION [None]
  - GINGIVAL BLEEDING [None]
  - PAIN IN EXTREMITY [None]
  - DIZZINESS [None]
  - COUGH [None]
  - PARAESTHESIA [None]
  - HYPERHIDROSIS [None]
  - BREAST SWELLING [None]
